FAERS Safety Report 8490667-3 (Version None)
Quarter: 2012Q3

REPORT INFORMATION
  Report Type: 
  Country: None (occurrence: None)
  Receive Date: 20120705
  Receipt Date: 20120628
  Transmission Date: 20120928
  Serious: Yes (Life-Threatening)
  Sender: FDA-Public Use
  Company Number: US-CELGENEUS-163-21880-12061871

PATIENT
  Sex: Male
  Weight: 77 kg

DRUGS (8)
  1. REVLIMID [Suspect]
     Indication: MULTIPLE MYELOMA
     Dosage: 25 MILLIGRAM
     Route: 048
     Dates: start: 20101213, end: 20120426
  2. ACYCLOVIR [Concomitant]
     Route: 065
  3. HYDROCHLOROTHIAZIDE [Concomitant]
     Route: 065
  4. AMLODIPINE [Concomitant]
     Route: 065
  5. DEXAMETHASONE SODIUM PHOSPHATE [Concomitant]
     Route: 065
  6. LESCOL [Concomitant]
     Route: 065
  7. LEVOTHYROXINE SODIUM [Concomitant]
     Route: 065
  8. COMPAZINE [Concomitant]
     Route: 065

REACTIONS (1)
  - MULTIPLE MYELOMA [None]
